FAERS Safety Report 9559497 (Version 1)
Quarter: 2013Q3

REPORT INFORMATION
  Report Type: Spontaneous
  Country: US (occurrence: None)
  Receive Date: 20130925
  Receipt Date: 20130925
  Transmission Date: 20140515
  Serious: Yes (Hospitalization)
  Sender: FDA-Public Use
  Company Number: 2013AP008196

PATIENT
  Sex: Female

DRUGS (1)
  1. CEVIMELINE HYDROCHLORIDE [Suspect]
     Indication: SJOGREN^S SYNDROME
     Dates: start: 20130625, end: 20130702

REACTIONS (8)
  - Constipation [None]
  - Blood urine present [None]
  - Dizziness [None]
  - Disorientation [None]
  - Vision blurred [None]
  - Hallucination [None]
  - Excoriation [None]
  - Tooth fracture [None]
